FAERS Safety Report 6461735-2 (Version None)
Quarter: 2009Q4

REPORT INFORMATION
  Report Type: 
  Country: None (occurrence: None)
  Receive Date: 20091130
  Receipt Date: 20091116
  Transmission Date: 20100525
  Serious: Yes (Hospitalization)
  Sender: FDA-Public Use
  Company Number: PHHY2008DE25731

PATIENT
  Age: 69 Year
  Sex: Female
  Weight: 62 kg

DRUGS (14)
  1. LOCOL [Suspect]
     Dosage: 80 MG, QD
     Route: 048
     Dates: start: 20071126, end: 20071201
  2. LOCOL [Suspect]
     Dosage: 80 MG, QD
     Route: 048
     Dates: start: 20071202, end: 20071205
  3. MCP [Concomitant]
     Dosage: 10 MG
     Route: 048
     Dates: start: 20071126, end: 20071130
  4. MCP [Concomitant]
     Dosage: 10 MG, 1 AMPOULE
     Route: 042
     Dates: start: 20071126, end: 20071126
  5. METOPROLOL SUCCINATE [Concomitant]
     Dosage: 47.5 MG
     Route: 048
     Dates: start: 20071127
  6. ASPIRIN [Concomitant]
     Dosage: 100 MG
     Route: 048
     Dates: start: 20071127
  7. ASPISOL [Concomitant]
     Dosage: 500 MG, ONCE/SINGLE
     Route: 042
     Dates: start: 20071126, end: 20071126
  8. PANTOZOL [Concomitant]
     Dosage: 40 MG
     Route: 048
     Dates: start: 20071128
  9. ENOXAPARIN SODIUM [Concomitant]
     Indication: THROMBOSIS PROPHYLAXIS
     Dosage: 8000 IU, 1 DAY
     Route: 058
     Dates: start: 20071128, end: 20071201
  10. NITRO-SPRAY [Concomitant]
     Dosage: 0.4 MG, 2X1
     Dates: start: 20071130, end: 20071130
  11. HEPARIN-NATRIUM [Concomitant]
     Dosage: 5000 IU
     Route: 042
     Dates: start: 20071126, end: 20071126
  12. NOVALGIN [Concomitant]
     Dosage: 500 MG, 1X20 DROPS
     Route: 048
     Dates: start: 20071129, end: 20071129
  13. BEGRIVAC [Concomitant]
     Indication: INFLUENZA IMMUNISATION
     Dosage: 45 UG
     Route: 030
     Dates: start: 20071120, end: 20071120
  14. SPIRULINA [Concomitant]
     Dosage: 400 MG
     Route: 048
     Dates: start: 20070801

REACTIONS (5)
  - CEREBRAL HYPOPERFUSION [None]
  - CIRCULATORY COLLAPSE [None]
  - HEPATITIS ACUTE [None]
  - HYPOPERFUSION [None]
  - TRANSAMINASES INCREASED [None]
